FAERS Safety Report 14380418 (Version 2)
Quarter: 2018Q1

REPORT INFORMATION
  Report Type: Report from Study
  Country: US (occurrence: US)
  Receive Date: 20180112
  Receipt Date: 20180202
  Transmission Date: 20180509
  Serious: Yes (Hospitalization)
  Sender: FDA-Public Use
  Company Number: US-JNJFOC-20180112442

PATIENT
  Age: 14 Year
  Sex: Male
  Weight: 45.13 kg

DRUGS (1)
  1. REMICADE [Suspect]
     Active Substance: INFLIXIMAB
     Indication: INFLAMMATORY BOWEL DISEASE
     Route: 042
     Dates: start: 20101227

REACTIONS (1)
  - Complication associated with device [Recovered/Resolved]

NARRATIVE: CASE EVENT DATE: 20171218
